FAERS Safety Report 25663533 (Version 1)
Quarter: 2025Q3

REPORT INFORMATION
  Report Type: Spontaneous
  Country: AU (occurrence: AU)
  Receive Date: 20250811
  Receipt Date: 20250811
  Transmission Date: 20251020
  Serious: Yes (Other)
  Sender: ACCORD
  Company Number: None

PATIENT
  Sex: Female

DRUGS (4)
  1. MYCOPHENOLATE MOFETIL [Suspect]
     Active Substance: MYCOPHENOLATE MOFETIL
     Indication: Product used for unknown indication
  2. PREDNISOLONE [Suspect]
     Active Substance: PREDNISOLONE
     Indication: Product used for unknown indication
  3. FLUCONAZOLE [Concomitant]
     Active Substance: FLUCONAZOLE
  4. ACETAMINOPHEN [Concomitant]
     Active Substance: ACETAMINOPHEN

REACTIONS (9)
  - Cervical dysplasia [Unknown]
  - Meningitis cryptococcal [Unknown]
  - Systemic lupus erythematosus [Unknown]
  - Osteonecrosis [Unknown]
  - Epstein-Barr virus infection [Unknown]
  - Rebound effect [Unknown]
  - Smooth muscle cell neoplasm [Unknown]
  - Off label use [Unknown]
  - Condition aggravated [Unknown]
